FAERS Safety Report 7133049-9 (Version None)
Quarter: 2010Q4

REPORT INFORMATION
  Report Type: 
  Country: None (occurrence: None)
  Receive Date: 20101202
  Receipt Date: 20101122
  Transmission Date: 20110411
  Serious: Yes (Congenital Anomaly)
  Sender: FDA-Public Use
  Company Number: A0897185A

PATIENT
  Sex: Female

DRUGS (2)
  1. PAXIL [Suspect]
     Dates: end: 20020101
  2. PAXIL CR [Suspect]
     Dates: start: 20021201

REACTIONS (4)
  - ATRIAL SEPTAL DEFECT [None]
  - COARCTATION OF THE AORTA [None]
  - DRUG EXPOSURE DURING PREGNANCY [None]
  - PULMONARY ARTERY STENOSIS CONGENITAL [None]
